FAERS Safety Report 9937242 (Version 2)
Quarter: 2014Q1

REPORT INFORMATION
  Report Type: Spontaneous
  Country: US (occurrence: US)
  Receive Date: 20140302
  Receipt Date: 20140302
  Transmission Date: 20141002
  Serious: Yes (Other)
  Sender: FDA-Public Use
  Company Number: 2014SP001079

PATIENT
  Age: 43 Year
  Sex: Male

DRUGS (2)
  1. HALOPERIDOL DECANOATE [Suspect]
     Indication: AGGRESSION
     Route: 042
  2. HALOPERIDOL DECANOATE [Suspect]
     Indication: AGITATION
     Route: 042

REACTIONS (2)
  - Sinus arrest [Unknown]
  - Bradycardia [Unknown]
